FAERS Safety Report 7528136-7 (Version None)
Quarter: 2011Q2

REPORT INFORMATION
  Report Type: 
  Country: None (occurrence: None)
  Receive Date: 20110607
  Receipt Date: 20100511
  Transmission Date: 20111010
  Serious: No
  Sender: FDA-Public Use
  Company Number: US-ASTRAZENECA-2010SE17758

PATIENT
  Age: 29171 Day
  Sex: Male

DRUGS (2)
  1. PLAVIX [Interacting]
     Indication: CATHETERISATION CARDIAC
     Route: 048
     Dates: start: 20100101
  2. PRILOSEC [Suspect]
     Indication: GASTROOESOPHAGEAL REFLUX DISEASE
     Route: 048
     Dates: end: 20100311

REACTIONS (2)
  - NO ADVERSE EVENT [None]
  - DRUG INTERACTION [None]
